FAERS Safety Report 6967650-X (Version None)
Quarter: 2010Q3

REPORT INFORMATION
  Report Type: 
  Country: None (occurrence: None)
  Receive Date: 20100907
  Receipt Date: 20100825
  Transmission Date: 20110219
  Serious: Yes (Other)
  Sender: FDA-Public Use
  Company Number: DE-PFIZER INC-2010098378

PATIENT
  Age: 59 Year
  Sex: Female
  Weight: 117 kg

DRUGS (3)
  1. AROMASIN [Suspect]
     Indication: BREAST CANCER FEMALE
     Dosage: 1 DF, 1X/DAY
     Route: 048
     Dates: start: 20090701
  2. MAGNESIUM [Concomitant]
     Indication: MUSCLE SPASMS
  3. GARLIC [Concomitant]

REACTIONS (4)
  - BLOOD URINE PRESENT [None]
  - DYSURIA [None]
  - MUSCLE SPASMS [None]
  - URINARY TRACT INFECTION [None]
